FAERS Safety Report 16200501 (Version 1)
Quarter: 2019Q2

REPORT INFORMATION
  Report Type: Spontaneous
  Country: FR (occurrence: FR)
  Receive Date: 20190416
  Receipt Date: 20190416
  Transmission Date: 20190711
  Serious: Yes (Death)
  Sender: FDA-Public Use
  Company Number: FR-TEVA-2019-FR-1037169

PATIENT
  Age: 77 Year
  Sex: Female
  Weight: 75 kg

DRUGS (6)
  1. INNOHEP [Suspect]
     Active Substance: TINZAPARIN SODIUM
     Indication: PULMONARY EMBOLISM
     Dosage: 13000 IU (INTERNATIONAL UNIT) DAILY;
     Route: 058
     Dates: start: 20181129
  2. OPDIVO [Suspect]
     Active Substance: NIVOLUMAB
     Indication: SQUAMOUS CELL CARCINOMA OF THE ORAL CAVITY
     Route: 042
     Dates: start: 20190129
  3. ADANCOR 10 MG, COMPRIM? S?CABLE [Suspect]
     Active Substance: NICORANDIL
     Dosage: 20 MILLIGRAM DAILY;
     Route: 048
  4. ATENOLOL. [Suspect]
     Active Substance: ATENOLOL
     Dosage: 100 MILLIGRAM DAILY;
     Route: 048
  5. KARDEGIC [Suspect]
     Active Substance: ASPIRIN DL-LYSINE
     Dosage: 75 MILLIGRAM DAILY;
     Route: 048
  6. LANTUS [Suspect]
     Active Substance: INSULIN GLARGINE
     Route: 058

REACTIONS (1)
  - Respiratory distress [Fatal]

NARRATIVE: CASE EVENT DATE: 20190130
